FAERS Safety Report 9730776 (Version 2)
Quarter: 2013Q4

REPORT INFORMATION
  Report Type: Report from Study
  Country: US (occurrence: US)
  Receive Date: 20131202
  Receipt Date: 20131211
  Transmission Date: 20140711
  Serious: Yes (Hospitalization, Other)
  Sender: FDA-Public Use
  Company Number: US-ABBVIE-13P-163-1173635-00

PATIENT
  Sex: Female

DRUGS (3)
  1. HUMIRA [Suspect]
     Indication: JUVENILE IDIOPATHIC ARTHRITIS
     Dates: start: 2008
  2. INFUSION [Suspect]
     Indication: JUVENILE IDIOPATHIC ARTHRITIS
  3. METHOTREXATE [Concomitant]
     Indication: ARTHRITIS

REACTIONS (8)
  - General physical health deterioration [Unknown]
  - Immune system disorder [Unknown]
  - Viral infection [Not Recovered/Not Resolved]
  - Fungal infection [Unknown]
  - Bacterial infection [Unknown]
  - Pyrexia [Unknown]
  - Neutropenia [Unknown]
  - Oral candidiasis [Unknown]
